FAERS Safety Report 25512768 (Version 1)
Quarter: 2025Q3

REPORT INFORMATION
  Report Type: Spontaneous
  Country: CN (occurrence: CN)
  Receive Date: 20250703
  Receipt Date: 20250703
  Transmission Date: 20251020
  Serious: Yes (Life-Threatening, Hospitalization, Other)
  Sender: MERCK SHARP & DOHME LLC
  Company Number: CN-009507513-2300084

PATIENT
  Age: 91 Year
  Sex: Male
  Weight: 51 kg

DRUGS (2)
  1. INVANZ [Suspect]
     Active Substance: ERTAPENEM SODIUM
     Indication: Abdominal infection
     Route: 041
     Dates: start: 20250607, end: 20250616
  2. SODIUM CHLORIDE [Concomitant]
     Active Substance: SODIUM CHLORIDE
     Indication: Abdominal infection
     Dosage: 0.9%
     Route: 041
     Dates: start: 20250607, end: 20250616

REACTIONS (9)
  - Loss of consciousness [Recovering/Resolving]
  - Atrial fibrillation [Unknown]
  - Respiratory acidosis [Recovering/Resolving]
  - Blood lactic acid increased [Recovering/Resolving]
  - Hypoxia [Recovering/Resolving]
  - Seizure [Recovering/Resolving]
  - Incorrect dose administered [Unknown]
  - Cerebral arteriosclerosis [Unknown]
  - Carotid arteriosclerosis [Unknown]

NARRATIVE: CASE EVENT DATE: 20250607
